FAERS Safety Report 19662777 (Version 1)
Quarter: 2021Q3

REPORT INFORMATION
  Report Type: Spontaneous
  Country: US (occurrence: US)
  Receive Date: 20210805
  Receipt Date: 20210805
  Transmission Date: 20211014
  Serious: No
  Sender: FDA-Public Use
  Company Number: US-MYLANLABS-2021M1045832

PATIENT
  Sex: Male
  Weight: 95 kg

DRUGS (3)
  1. SEMGLEE (INSULIN GLARGINE) [Suspect]
     Active Substance: INSULIN GLARGINE
     Indication: TYPE 2 DIABETES MELLITUS
     Dosage: 65 IU BID, 100 IU IN 1 ML, 3 ML IN ONE SYRINGE
     Route: 058
  2. METFORMIN [Concomitant]
     Active Substance: METFORMIN HYDROCHLORIDE
  3. ERTUGLIFLOZIN PIDOLATE/METFORMIN HYDROCHLORIDE [Concomitant]

REACTIONS (2)
  - Device issue [Not Recovered/Not Resolved]
  - Device use issue [Not Recovered/Not Resolved]
